FAERS Safety Report 15376021 (Version 1)
Quarter: 2018Q3

REPORT INFORMATION
  Report Type: Spontaneous
  Country: US (occurrence: US)
  Receive Date: 20180912
  Receipt Date: 20180912
  Transmission Date: 20181010
  Serious: Yes (Hospitalization)
  Sender: FDA-Public Use
  Company Number: US-SA-2018SA246843

PATIENT
  Age: 73 Year
  Sex: Female

DRUGS (13)
  1. MEPERIDINE HCL [Concomitant]
     Active Substance: MEPERIDINE HYDROCHLORIDE
     Dosage: 12.5 MG
     Route: 042
  2. LIDOCAINE HYDROCHLORIDE. [Suspect]
     Active Substance: LIDOCAINE HYDROCHLORIDE
     Indication: ANAESTHESIA
     Dosage: 380 MG(7.6 MG/KG), 15 CC OF 2% LIDOCAINE TO SWALLOW AND TWO SPRAYS OF 4% LIDOCAINE, EACH OF 1 SECOND
  3. OMEPRAZOLE. [Concomitant]
     Active Substance: OMEPRAZOLE
  4. ATENOLOL. [Concomitant]
     Active Substance: ATENOLOL
  5. FUROSEMIDE. [Concomitant]
     Active Substance: FUROSEMIDE
  6. METFORMIN [Concomitant]
     Active Substance: METFORMIN HYDROCHLORIDE
  7. GLIPIZIDE. [Concomitant]
     Active Substance: GLIPIZIDE
  8. WARFARIN [Concomitant]
     Active Substance: WARFARIN
  9. ISOSORBIDE MONONITRATE. [Concomitant]
     Active Substance: ISOSORBIDE MONONITRATE
     Dosage: 30 MG, QD
  10. MIDAZOLAM [Concomitant]
     Active Substance: MIDAZOLAM HYDROCHLORIDE
     Dosage: 1 MG
  11. DIGOXIN. [Concomitant]
     Active Substance: DIGOXIN
  12. ASCORBIC ACID. [Concomitant]
     Active Substance: ASCORBIC ACID
     Dosage: 500 MG, BID
  13. FLUMAZENIL. [Concomitant]
     Active Substance: FLUMAZENIL
     Dosage: 0.4 MG
     Route: 042

REACTIONS (2)
  - Methaemoglobinaemia [Recovered/Resolved]
  - Cyanosis [Recovered/Resolved]
